FAERS Safety Report 9232920 (Version 1)
Quarter: 2013Q2

REPORT INFORMATION
  Report Type: Spontaneous
  Country: US (occurrence: None)
  Receive Date: 20130415
  Receipt Date: 20130415
  Transmission Date: 20140414
  Serious: Yes (Hospitalization)
  Sender: FDA-Public Use
  Company Number: None

PATIENT
  Age: 71 Year
  Sex: Male
  Weight: 78.4 kg

DRUGS (2)
  1. REVLIMID [Suspect]
     Indication: DIFFUSE LARGE B-CELL LYMPHOMA RECURRENT
     Dosage: 15 MG DAILY X 21 DAYS PO
     Route: 048
     Dates: start: 20130328, end: 20130405
  2. EVEROLIMUS [Suspect]
     Dosage: 5 MG DAILY X 28 DAYS PO
     Route: 048
     Dates: start: 20130328, end: 20130405

REACTIONS (6)
  - Cellulitis [None]
  - Otitis externa [None]
  - Pharyngitis [None]
  - Skin infection [None]
  - Streptococcal infection [None]
  - Pancytopenia [None]
